FAERS Safety Report 6027236-0 (Version None)
Quarter: 2009Q1

REPORT INFORMATION
  Report Type: 
  Country: None (occurrence: None)
  Receive Date: 20090105
  Receipt Date: 20081229
  Transmission Date: 20090719
  Serious: Yes (Other)
  Sender: FDA-Public Use
  Company Number: NL-ABBOTT-08P-114-0494495-00

PATIENT
  Sex: Female
  Weight: 89 kg

DRUGS (3)
  1. HUMIRA [Suspect]
     Indication: RHEUMATOID ARTHRITIS
     Route: 058
     Dates: start: 20080801
  2. NEXIUM [Concomitant]
     Indication: GASTRIC DISORDER
     Route: 048
  3. CRESTOR [Concomitant]
     Indication: BLOOD CHOLESTEROL INCREASED
     Route: 048
     Dates: start: 20040101

REACTIONS (2)
  - ANKLE FRACTURE [None]
  - FALL [None]
